FAERS Safety Report 9709036 (Version 9)
Quarter: 2014Q4

REPORT INFORMATION
  Report Type: Report from Study
  Country: FR (occurrence: FR)
  Receive Date: 20131125
  Receipt Date: 20141230
  Transmission Date: 20150529
  Serious: Yes (Death, Hospitalization, Disabling, Other)
  Sender: FDA-Public Use
  Company Number: FR-TEVA-446564USA

PATIENT
  Age: 60 Year
  Sex: Male

DRUGS (21)
  1. POMALIDOMIDE [Suspect]
     Active Substance: POMALIDOMIDE
     Dosage: UID/QD
  2. REVLIMID [Suspect]
     Active Substance: LENALIDOMIDE
     Indication: PLASMA CELL MYELOMA
     Dates: start: 20110520, end: 20111120
  3. DEXAMETHASONE. [Suspect]
     Active Substance: DEXAMETHASONE
     Dosage: WEEKLY
     Dates: start: 20130125
  4. POMALIDOMIDE [Suspect]
     Active Substance: POMALIDOMIDE
     Indication: PLASMA CELL MYELOMA
     Dates: start: 20130125
  5. BENDAMUSTINE [Suspect]
     Active Substance: BENDAMUSTINE
     Indication: PLASMA CELL MYELOMA
     Dosage: (TREATMENT LINES 2, CYCLE 1)
     Dates: start: 20120905, end: 20130117
  6. DEXAMETHASONE. [Suspect]
     Active Substance: DEXAMETHASONE
     Dates: start: 20120905, end: 20130117
  7. DEXAMETHASONE. [Suspect]
     Active Substance: DEXAMETHASONE
     Dates: start: 20130528
  8. VALACICLOVIR [Concomitant]
     Active Substance: VALACYCLOVIR HYDROCHLORIDE
  9. POMALIDOMIDE [Suspect]
     Active Substance: POMALIDOMIDE
     Dates: start: 20130528
  10. VELCADE [Suspect]
     Active Substance: BORTEZOMIB
     Dosage: TREATMENT LINE 2, CYCLE 1
     Dates: start: 20120905, end: 20130117
  11. POMALIDOMIDE [Suspect]
     Active Substance: POMALIDOMIDE
     Dosage: UID/QD
     Dates: start: 20130301, end: 20130302
  12. RAMIPRIL. [Concomitant]
     Active Substance: RAMIPRIL
  13. INSULIN [Concomitant]
     Active Substance: INSULIN NOS
  14. VELCADE [Suspect]
     Active Substance: BORTEZOMIB
     Indication: PLASMA CELL MYELOMA
     Dosage: TREATMENT LINES 1, CYCLE 1
     Dates: start: 20110520, end: 20111120
  15. REVLIMID [Suspect]
     Active Substance: LENALIDOMIDE
     Dosage: TREATMENT LINE 1, CYCLE 1
  16. DEXAMETHASONE. [Suspect]
     Active Substance: DEXAMETHASONE
     Dosage: WEEKLY
     Dates: start: 20130301, end: 20130302
  17. DEXAMETHASONE. [Suspect]
     Active Substance: DEXAMETHASONE
     Indication: PLASMA CELL MYELOMA
     Dosage: TREATMENT LINE 1, CYCLE
     Dates: start: 20110520, end: 20111120
  18. DEXAMETHASONE. [Suspect]
     Active Substance: DEXAMETHASONE
     Dosage: UID/QD
     Dates: start: 20130308, end: 20130313
  19. LANTUS [Concomitant]
     Active Substance: INSULIN GLARGINE
     Dosage: UNITS IN THE EVENING
  20. KARDEGIC [Concomitant]
     Active Substance: ASPIRIN LYSINE
  21. DIGOXIN. [Concomitant]
     Active Substance: DIGOXIN
     Dates: start: 201303

REACTIONS (12)
  - Anaemia [Unknown]
  - Atrial fibrillation [Unknown]
  - Bronchopulmonary aspergillosis [Unknown]
  - General physical health deterioration [Recovered/Resolved with Sequelae]
  - Hypernatraemia [Recovered/Resolved]
  - Cholestasis [Unknown]
  - Death [Fatal]
  - Hypoalbuminaemia [Unknown]
  - Weight decreased [Recovered/Resolved]
  - Pancytopenia [Unknown]
  - Hyponatraemia [Unknown]
  - Pyrexia [Unknown]

NARRATIVE: CASE EVENT DATE: 20130128
